FAERS Safety Report 5404735-3 (Version None)
Quarter: 2007Q3

REPORT INFORMATION
  Report Type: 
  Country: None (occurrence: None)
  Receive Date: 20070801
  Receipt Date: 20070718
  Transmission Date: 20080115
  Serious: Yes (Hospitalization)
  Sender: FDA-Public Use
  Company Number: 2007EU001638

PATIENT
  Age: 34 Year
  Sex: Male

DRUGS (6)
  1. PROGRAF [Suspect]
     Indication: RENAL TRANSPLANT
  2. PREDNISOLONE [Suspect]
     Indication: RENAL TRANSPLANT
     Dosage: /D, ORAL
     Route: 048
     Dates: start: 20031001
  3. MYCOPHENOLATE MOFETIL [Suspect]
     Indication: RENAL TRANSPLANT
     Dosage: /D, ORAL
     Route: 048
     Dates: start: 20031001, end: 20040801
  4. AZATHIOPRINE [Suspect]
     Indication: RENAL TRANSPLANT
     Dosage: /D, ORAL
     Route: 048
  5. SIROLIMUS(SIROLIMUS) [Suspect]
     Indication: RENAL TRANSPLANT
     Dosage: /D, ORAL
     Route: 048
     Dates: start: 20040801
  6. SIROLIMUS(SIROLIMUS) [Suspect]
     Indication: RENAL TRANSPLANT
     Dosage: /D, ORAL
     Route: 048
     Dates: start: 20040801

REACTIONS (26)
  - ABSCESS [None]
  - ARTHRITIS INFECTIVE [None]
  - ASPERGILLOSIS [None]
  - COMPLEX REGIONAL PAIN SYNDROME [None]
  - COUGH [None]
  - DIABETES MELLITUS [None]
  - FEELING HOT [None]
  - HAEMOGLOBIN DECREASED [None]
  - HEPATITIS C RNA POSITIVE [None]
  - HEPATOTOXICITY [None]
  - JOINT EFFUSION [None]
  - JOINT RANGE OF MOTION DECREASED [None]
  - JOINT SWELLING [None]
  - KIDNEY TRANSPLANT REJECTION [None]
  - LUNG INFECTION [None]
  - LYMPHOCELE [None]
  - NEUTROPENIA [None]
  - OEDEMA PERIPHERAL [None]
  - OSTEOLYSIS [None]
  - OSTEOMYELITIS [None]
  - PULMONARY GRANULOMA [None]
  - PYREXIA [None]
  - RENAL IMPAIRMENT [None]
  - SYNOVITIS [None]
  - TENDERNESS [None]
  - TUBERCULOSIS [None]
